FAERS Safety Report 6756684-6 (Version None)
Quarter: 2010Q2

REPORT INFORMATION
  Report Type: 
  Country: None (occurrence: None)
  Receive Date: 20100604
  Receipt Date: 20100524
  Transmission Date: 20101027
  Serious: Yes (Death)
  Sender: FDA-Public Use
  Company Number: CH-WATSON-2010-07103

PATIENT
  Age: 50 Year
  Sex: Male

DRUGS (3)
  1. DIPHENHYDRAMINE HCL [Suspect]
     Indication: POISONING
     Dosage: UNK
     Route: 048
  2. NARDYL [Suspect]
     Indication: POISONING
     Dosage: UNK
  3. ALCOHOL                            /00002101/ [Suspect]
     Indication: POISONING
     Dosage: UNK

REACTIONS (1)
  - POISONING [None]
